FAERS Safety Report 6411990-X (Version None)
Quarter: 2009Q4

REPORT INFORMATION
  Report Type: 
  Country: None (occurrence: None)
  Receive Date: 20091023
  Receipt Date: 20091012
  Transmission Date: 20100525
  Serious: Yes (Other)
  Sender: FDA-Public Use
  Company Number: TW-JNJFOC-20091004308

PATIENT
  Sex: Female

DRUGS (1)
  1. ULTRACET [Suspect]
     Indication: ANALGESIC THERAPY
     Route: 048

REACTIONS (3)
  - PEPTIC ULCER [None]
  - VERTIGO [None]
  - WEIGHT DECREASED [None]
